FAERS Safety Report 5276698-5 (Version None)
Quarter: 2007Q1

REPORT INFORMATION
  Report Type: 
  Country: None (occurrence: None)
  Receive Date: 20070321
  Receipt Date: 20070109
  Transmission Date: 20070707
  Serious: Yes (Hospitalization)
  Sender: FDA-Public Use
  Company Number: 237963K06USA

PATIENT
  Age: 41 Year
  Sex: Male
  Weight: 131.5431 kg

DRUGS (1)
  1. REBIF [Suspect]
     Indication: MULTIPLE SCLEROSIS
     Dosage: 44 MCG, 3 IN 1 WEEKS, SUBCUTANEOUS
     Route: 058
     Dates: start: 20060707

REACTIONS (4)
  - DISEASE RECURRENCE [None]
  - NEPHROLITHIASIS [None]
  - PAIN [None]
  - TENDERNESS [None]
